FAERS Safety Report 8569706-7 (Version None)
Quarter: 2012Q3

REPORT INFORMATION
  Report Type: 
  Country: None (occurrence: None)
  Receive Date: 20120803
  Receipt Date: 20120522
  Transmission Date: 20120928
  Serious: No
  Sender: FDA-Public Use
  Company Number: US-ABBOTT-12P-163-0937463-00

PATIENT
  Sex: Male
  Weight: 106.69 kg

DRUGS (2)
  1. ASPIRIN [Concomitant]
     Indication: PRODUCT USED FOR UNKNOWN INDICATION
  2. NIASPAN [Suspect]
     Indication: HIGH DENSITY LIPOPROTEIN DECREASED
     Dosage: X2 TABLETS
     Dates: start: 20100101

REACTIONS (3)
  - FEELING ABNORMAL [None]
  - SLEEP DISORDER [None]
  - SKIN BURNING SENSATION [None]
